FAERS Safety Report 4622355-5 (Version None)
Quarter: 2005Q1

REPORT INFORMATION
  Report Type: 
  Country: None (occurrence: None)
  Receive Date: 20050328
  Receipt Date: 20050317
  Transmission Date: 20050727
  Serious: Yes (Hospitalization)
  Sender: FDA-Public Use
  Company Number: 2004218573DE

PATIENT
  Age: 64 Year
  Sex: Female
  Weight: 60 kg

DRUGS (3)
  1. ZYVOX [Suspect]
     Indication: BRAIN ABSCESS
     Dosage: 1200 MG (600 MG BID) ORAL
     Route: 048
     Dates: start: 20040515
  2. BENAZEPRIL HCL [Concomitant]
  3. STREPTOCOCCUS FAECALIS [Concomitant]

REACTIONS (2)
  - FUNGAL SKIN INFECTION [None]
  - ROSACEA [None]
